FAERS Safety Report 13352660 (Version 2)
Quarter: 2017Q1

REPORT INFORMATION
  Report Type: Report from Study
  Country: AU (occurrence: AU)
  Receive Date: 20170320
  Receipt Date: 20170320
  Transmission Date: 20170429
  Serious: Yes (Hospitalization, Other)
  Sender: FDA-Public Use
  Company Number: AU-REGENERON PHARMACEUTICALS, INC.-2016-21470

PATIENT

DRUGS (1)
  1. EYLEA [Suspect]
     Active Substance: AFLIBERCEPT
     Indication: DIABETIC RETINAL OEDEMA
     Dosage: 2 MG, Q1MON (EVERY 4 WEEKS)
     Route: 031
     Dates: start: 20160301, end: 201607

REACTIONS (7)
  - Eye swelling [Not Recovered/Not Resolved]
  - Eye disorder [Unknown]
  - Product use issue [Unknown]
  - Blindness transient [Unknown]
  - Eye swelling [Recovering/Resolving]
  - Osteomyelitis [Unknown]
  - Intraocular pressure increased [Unknown]

NARRATIVE: CASE EVENT DATE: 20160815
